FAERS Safety Report 16335940 (Version 1)
Quarter: 2019Q2

REPORT INFORMATION
  Report Type: Spontaneous
  Country: GB (occurrence: GB)
  Receive Date: 20190521
  Receipt Date: 20190521
  Transmission Date: 20190711
  Serious: Yes (Death)
  Sender: FDA-Public Use
  Company Number: GB-TEVA-2019-GB-1051904

PATIENT
  Age: 65 Year
  Sex: Male
  Weight: 79 kg

DRUGS (3)
  1. TAMSULOSIN [Concomitant]
     Active Substance: TAMSULOSIN
  2. FLUVOXAMINE [Suspect]
     Active Substance: FLUVOXAMINE
     Indication: AGITATED DEPRESSION
     Route: 048
     Dates: start: 20181219, end: 20181222
  3. MIRTAZAPINE. [Concomitant]
     Active Substance: MIRTAZAPINE

REACTIONS (3)
  - Thermal burn [Fatal]
  - Completed suicide [Fatal]
  - Agitation [Fatal]

NARRATIVE: CASE EVENT DATE: 20181223
